FAERS Safety Report 9836855 (Version 1)
Quarter: 2014Q1

REPORT INFORMATION
  Report Type: Report from Study
  Country: US (occurrence: US)
  Receive Date: 20140123
  Receipt Date: 20140123
  Transmission Date: 20141002
  Serious: Yes (Hospitalization)
  Sender: FDA-Public Use
  Company Number: PHEH2014US001505

PATIENT
  Age: 89 Year
  Sex: Female

DRUGS (4)
  1. GLEEVEC [Suspect]
     Indication: ACUTE MYELOID LEUKAEMIA (IN REMISSION)
     Dosage: 200 MG, QD
     Route: 048
     Dates: start: 20120802
  2. CELEBREX [Concomitant]
     Dosage: UNK UKN, UNK
  3. SYNTHROID [Concomitant]
     Dosage: UNK UKN, UNK
  4. COUMADINE [Concomitant]
     Dosage: UNK UKN, UNK

REACTIONS (1)
  - Fall [Not Recovered/Not Resolved]
